FAERS Safety Report 6594646-2 (Version None)
Quarter: 2010Q1

REPORT INFORMATION
  Report Type: 
  Country: None (occurrence: None)
  Receive Date: 20100222
  Receipt Date: 20100211
  Transmission Date: 20100710
  Serious: Yes (Other)
  Sender: FDA-Public Use
  Company Number: GB-ASTRAZENECA-2010SE06088

PATIENT
  Sex: Female

DRUGS (2)
  1. LIDOCAINE [Suspect]
     Indication: PREMEDICATION
     Dosage: SINGLE ADMINISTRATION
  2. POLY-L-LACTIC ACID [Suspect]
     Dosage: SINGLE ADMINISTRATION

REACTIONS (2)
  - DYSKINESIA [None]
  - MUSCLE TIGHTNESS [None]
